FAERS Safety Report 9202091 (Version 1)
Quarter: 2013Q2

REPORT INFORMATION
  Report Type: Spontaneous
  Country: SE (occurrence: SE)
  Receive Date: 20130401
  Receipt Date: 20130401
  Transmission Date: 20140414
  Serious: Yes (Hospitalization)
  Sender: FDA-Public Use
  Company Number: SE-ASTRAZENECA-2013SE19989

PATIENT
  Age: 21844 Day
  Sex: Male

DRUGS (9)
  1. SEROQUEL [Suspect]
     Dosage: 25 MG UP TO 200 MG
     Route: 048
     Dates: start: 201211, end: 201212
  2. SEROQUEL [Suspect]
     Route: 048
     Dates: start: 20121227, end: 20130103
  3. SEROQUEL [Suspect]
     Route: 048
     Dates: start: 20130103
  4. ERGENYL [Suspect]
     Route: 048
     Dates: start: 20121212, end: 20130114
  5. LERGIGAN [Concomitant]
  6. THERALEN [Concomitant]
  7. OXASCAND [Concomitant]
  8. IMOVANE [Concomitant]
  9. STESOLID [Concomitant]

REACTIONS (1)
  - Chills [Not Recovered/Not Resolved]
